FAERS Safety Report 20698870 (Version 1)
Quarter: 2022Q2

REPORT INFORMATION
  Report Type: Spontaneous
  Country: DK (occurrence: DK)
  Receive Date: 20220412
  Receipt Date: 20220412
  Transmission Date: 20220721
  Serious: Yes (Other)
  Sender: FDA-Public Use
  Company Number: None

PATIENT
  Sex: Female

DRUGS (6)
  1. REVLIMID [Suspect]
     Active Substance: LENALIDOMIDE
     Indication: Plasma cell myeloma
     Dosage: STRENGTH: 15MG
     Route: 048
     Dates: start: 2020
  2. MELPHALAN [Suspect]
     Active Substance: MELPHALAN
     Indication: Product used for unknown indication
     Dosage: STRENGTH: UNKNOWN
     Route: 065
     Dates: start: 2018
  3. ZOMETA [Suspect]
     Active Substance: ZOLEDRONIC ACID
     Indication: Plasma cell myeloma
     Dosage: EVERY 3RD-4TH WEEK?STRENGTH: 4MG/5ML
     Route: 042
     Dates: start: 2018
  4. ALENDRONIC ACID [Suspect]
     Active Substance: ALENDRONIC ACID
     Indication: Osteoporosis
     Dosage: STRENGTH: 70MG
     Route: 048
     Dates: start: 2013
  5. DARZALEX [Suspect]
     Active Substance: DARATUMUMAB
     Indication: Plasma cell myeloma
     Dosage: STRENGTH: 20MG/ML
     Route: 042
     Dates: start: 2020
  6. BORTEZOMIB [Suspect]
     Active Substance: BORTEZOMIB
     Indication: Product used for unknown indication
     Dosage: STRENGTH: UNKNOWN
     Route: 065
     Dates: start: 2018

REACTIONS (3)
  - Osteonecrosis of jaw [Recovered/Resolved]
  - Osteonecrosis of jaw [Not Recovered/Not Resolved]
  - Intentional product use issue [Unknown]

NARRATIVE: CASE EVENT DATE: 20190101
